FAERS Safety Report 8770914 (Version 1)
Quarter: 2012Q4

REPORT INFORMATION
  Report Type: 
  Country: US (occurrence: US)
  Receive Date: 20120906
  Receipt Date: 20120906
  Transmission Date: 20130627
  Serious: No
  Sender: FDA-Public Use
  Company Number: US-009507513-1207USA009432

PATIENT

DRUGS (1)
  1. AVOBENZONE\HOMOSALATE\OCTINOXATE\OCTOCRYLENE [Suspect]
     Indication: PRODUCT USED FOR UNKNOWN INDICATION
     Dosage: UNK, Unknown
     Route: 061
     Dates: start: 201206

REACTIONS (2)
  - Thrombosis [Unknown]
  - Burns second degree [Unknown]
